FAERS Safety Report 4556234-9 (Version None)
Quarter: 2005Q1

REPORT INFORMATION
  Report Type: 
  Country: None (occurrence: None)
  Receive Date: 20050119
  Receipt Date: 20041021
  Transmission Date: 20050727
  Serious: Yes (Death, Life-Threatening, Hospitalization, Disabling)
  Sender: FDA-Public Use
  Company Number: US-MERCK-0410USA03268

PATIENT
  Age: 79 Year
  Sex: Male
  Weight: 98 kg

DRUGS (13)
  1. VIOXX [Suspect]
     Indication: OSTEOARTHRITIS
     Route: 048
     Dates: start: 20010124, end: 20031220
  2. DARVOCET-N 100 [Concomitant]
     Route: 048
  3. COUMADIN [Concomitant]
     Indication: THROMBOSIS PROPHYLAXIS
     Route: 048
  4. BENTYL [Concomitant]
     Route: 048
  5. LASIX [Concomitant]
     Route: 048
  6. CODEINE PHOSPHATE AND GUAIFENESIN [Concomitant]
     Route: 048
  7. FLOMAX [Concomitant]
     Route: 048
  8. LORAZEPAM [Concomitant]
     Route: 048
  9. NORVASC [Concomitant]
     Route: 048
  10. TRAZODONE HYDROCHLORIDE [Concomitant]
     Route: 048
  11. WELLBUTRIN SR [Concomitant]
     Route: 048
  12. ASPIRIN [Concomitant]
     Route: 048
  13. COMBIVENT [Concomitant]
     Route: 065

REACTIONS (26)
  - ABDOMINAL DISTENSION [None]
  - ACIDOSIS [None]
  - ACTIVATED PARTIAL THROMBOPLASTIN TIME PROLONGED [None]
  - ACUTE RESPIRATORY DISTRESS SYNDROME [None]
  - APNOEA [None]
  - ASPIRATION [None]
  - ATELECTASIS [None]
  - BLOOD MAGNESIUM INCREASED [None]
  - CARDIAC ARREST [None]
  - CARDIOMEGALY [None]
  - COAGULOPATHY [None]
  - COMA [None]
  - CONVULSION [None]
  - ELECTROCARDIOGRAM ABNORMAL [None]
  - FEELING ABNORMAL [None]
  - HAEMOGLOBIN DECREASED [None]
  - HYPERGLYCAEMIA [None]
  - HYPOXIC ENCEPHALOPATHY [None]
  - INTERNATIONAL NORMALISED RATIO INCREASED [None]
  - LUNG INFILTRATION [None]
  - OEDEMA [None]
  - PULSE ABSENT [None]
  - RENAL FAILURE [None]
  - RESPIRATORY FAILURE [None]
  - THERAPY NON-RESPONDER [None]
  - WHITE BLOOD CELL COUNT INCREASED [None]
